FAERS Safety Report 8985250 (Version 1)
Quarter: 2012Q4

REPORT INFORMATION
  Report Type: 
  Country: TW (occurrence: TW)
  Receive Date: 20121226
  Receipt Date: 20121226
  Transmission Date: 20130627
  Serious: Yes (Hospitalization)
  Sender: FDA-Public Use
  Company Number: TW-PFIZER INC-2012328051

PATIENT
  Age: 81 Year
  Sex: Female

DRUGS (7)
  1. AMIODARONE HCL [Suspect]
     Dosage: 200 mg, 1x/day
     Route: 048
  2. CLOPIDOGREL BISULFATE [Concomitant]
     Dosage: UNK
     Dates: start: 20121009
  3. ASPIRIN [Concomitant]
     Dosage: UNK
  4. ATORVASTATIN [Concomitant]
     Dosage: UNK
  5. FUROSEMIDE [Concomitant]
     Dosage: UNK
  6. RABEPRAZOLE [Concomitant]
     Dosage: UNK
  7. SPIRONOLACTONE [Concomitant]
     Dosage: UNK

REACTIONS (2)
  - Nodal arrhythmia [Recovered/Resolved]
  - Sick sinus syndrome [Recovered/Resolved]
